FAERS Safety Report 25668841 (Version 3)
Quarter: 2025Q3

REPORT INFORMATION
  Report Type: Report from Study
  Country: US (occurrence: US)
  Receive Date: 20250812
  Receipt Date: 20250912
  Transmission Date: 20251021
  Serious: No
  Sender: SUNOVION
  Company Number: US-SUMITOMO PHARMA SWITZERLAND GMBH-2025SPA007977

PATIENT
  Age: 73 Year
  Sex: Male

DRUGS (13)
  1. ORGOVYX [Suspect]
     Active Substance: RELUGOLIX
     Indication: Prostate cancer
     Route: 048
  2. ORGOVYX [Suspect]
     Active Substance: RELUGOLIX
     Route: 048
  3. VITAMINS [Concomitant]
     Active Substance: VITAMINS
  4. FENOFIBRATE [Concomitant]
     Active Substance: FENOFIBRATE
  5. LOSARTAN [Concomitant]
     Active Substance: LOSARTAN
  6. Isorel [Concomitant]
  7. FISH OIL [Concomitant]
     Active Substance: FISH OIL
  8. MINERALS [Concomitant]
     Active Substance: MINERALS
  9. Centrum advance 50+ adults [Concomitant]
  10. IMODIUM A-D [Concomitant]
     Active Substance: LOPERAMIDE HYDROCHLORIDE
  11. PEPTO-BISMOL [Concomitant]
     Active Substance: BISMUTH SUBSALICYLATE
  12. EPSOM SALT [Concomitant]
     Active Substance: MAGNESIUM SULFATE
  13. TYLENOL [Concomitant]
     Active Substance: ACETAMINOPHEN

REACTIONS (9)
  - Pain [Unknown]
  - Muscle spasms [Recovering/Resolving]
  - Abdominal pain upper [Recovering/Resolving]
  - Fatigue [Unknown]
  - Constipation [Recovering/Resolving]
  - Diarrhoea [Recovering/Resolving]
  - Myalgia [Recovering/Resolving]
  - Arthralgia [Recovering/Resolving]
  - Product dose omission issue [Recovered/Resolved]

NARRATIVE: CASE EVENT DATE: 20250718
